FAERS Safety Report 19737052 (Version 1)
Quarter: 2021Q3

REPORT INFORMATION
  Report Type: Spontaneous
  Country: FR (occurrence: FR)
  Receive Date: 20210824
  Receipt Date: 20210824
  Transmission Date: 20211014
  Serious: Yes (Life-Threatening, Hospitalization)
  Sender: FDA-Public Use
  Company Number: FR-ASTRAZENECA-2021A688929

PATIENT
  Age: 71 Year
  Sex: Male
  Weight: 97 kg

DRUGS (5)
  1. COLCHIMAX (COLCHICINE/PAPAVER SOMNIFERUM POWDER/TIEMONIUM METHYLSULPHATE) [Suspect]
     Active Substance: COLCHICINE\OPIUM\TIEMONIUM METHYLSULFATE
     Indication: CARDIAC FAILURE
     Dosage: UNKNOWN
     Route: 048
     Dates: start: 20210723, end: 20210728
  2. AMOXICILLINE [Suspect]
     Active Substance: AMOXICILLIN
     Indication: LUNG DISORDER
     Dosage: 1 G * 3 PER DAY3.0G UNKNOWN
     Route: 048
     Dates: start: 20210714, end: 20210717
  3. FORXIGA [Suspect]
     Active Substance: DAPAGLIFLOZIN
     Indication: CARDIAC FAILURE
     Dosage: 10MG PER DAY
     Route: 048
     Dates: start: 20210722, end: 20210724
  4. AUGMENTIN [Suspect]
     Active Substance: AMOXICILLIN\CLAVULANATE POTASSIUM
     Indication: LUNG DISORDER
     Dosage: 1G*3 PER DAY3.0G UNKNOWN
     Route: 048
     Dates: start: 20210722, end: 20210724
  5. CLARITHROMYCINE [Suspect]
     Active Substance: CLARITHROMYCIN
     Indication: LUNG DISORDER
     Dosage: 500MG PER DAY500.0MG UNKNOWN
     Route: 048
     Dates: start: 20210717, end: 20210722

REACTIONS (1)
  - Immune thrombocytopenia [Recovered/Resolved]

NARRATIVE: CASE EVENT DATE: 20210724
